FAERS Safety Report 13608568 (Version 1)
Quarter: 2017Q2

REPORT INFORMATION
  Report Type: Spontaneous
  Country: DE (occurrence: DE)
  Receive Date: 20170602
  Receipt Date: 20170602
  Transmission Date: 20170830
  Serious: Yes (Hospitalization, Other)
  Sender: FDA-Public Use
  Company Number: DE-PFIZER INC-2017235114

PATIENT
  Age: 66 Year
  Sex: Female

DRUGS (21)
  1. BISOPROLOL [Concomitant]
     Active Substance: BISOPROLOL
     Dosage: 2.5 MG, 1X/DAY
     Route: 048
     Dates: start: 20160301
  2. VITAMIN B12 [Concomitant]
     Active Substance: CYANOCOBALAMIN
     Dosage: 1000 UG, 1X/DAY
     Route: 048
     Dates: start: 20160401
  3. MOVICOL [Concomitant]
     Active Substance: POLYETHYLENE GLYCOL 3350\POTASSIUM CHLORIDE\SODIUM BICARBONATE\SODIUM CHLORIDE
     Dosage: 3350 MG, 1X/DAY
     Route: 048
     Dates: start: 20160401
  4. CLOZAPINE. [Suspect]
     Active Substance: CLOZAPINE
     Dosage: 200 MG, 1X/DAY
     Route: 048
     Dates: start: 20160711, end: 20160726
  5. CLOZAPINE. [Suspect]
     Active Substance: CLOZAPINE
     Dosage: 150 MG, 1X/DAY
     Route: 048
     Dates: start: 20160727, end: 20160801
  6. LAMOTRIGIN [Suspect]
     Active Substance: LAMOTRIGINE
     Dosage: 150 MG, 1X/DAY
     Route: 048
     Dates: start: 20160301, end: 20160331
  7. ARIPIPRAZOL [Suspect]
     Active Substance: ARIPIPRAZOLE
     Dosage: 10 MG, 1X/DAY
     Route: 048
     Dates: start: 20160518, end: 20160527
  8. FOLIC ACID. [Concomitant]
     Active Substance: FOLIC ACID
     Dosage: 5 MG, 1X/DAY
     Route: 048
     Dates: start: 20160401
  9. CLOZAPINE. [Suspect]
     Active Substance: CLOZAPINE
     Dosage: 300 MG, 1X/DAY
     Route: 048
     Dates: start: 20160527, end: 20160601
  10. CLOZAPINE. [Suspect]
     Active Substance: CLOZAPINE
     Dosage: 250 MG, 1X/DAY
     Route: 048
     Dates: start: 20160609, end: 20160710
  11. CLOZAPINE. [Suspect]
     Active Substance: CLOZAPINE
     Dosage: 125 MG, 1X/DAY
     Route: 048
     Dates: start: 20160802
  12. QUILONUM RETARD [Suspect]
     Active Substance: LITHIUM CARBONATE
     Dosage: 675 MG, 1X/DAY
     Route: 048
     Dates: start: 20160301, end: 20160602
  13. L-THYROXIN [Concomitant]
     Active Substance: LEVOTHYROXINE SODIUM
     Dosage: 50 UG, 1X/DAY
     Route: 048
     Dates: start: 20160301
  14. SIMVASTATIN. [Concomitant]
     Active Substance: SIMVASTATIN
     Dosage: 40 MG, 1X/DAY
     Route: 048
     Dates: start: 20160301
  15. VENLAFAXINE HCL [Suspect]
     Active Substance: VENLAFAXINE HYDROCHLORIDE
     Dosage: 150 MG, 1X/DAY
     Route: 048
     Dates: start: 20160301
  16. CLOZAPINE. [Suspect]
     Active Substance: CLOZAPINE
     Dosage: 325 MG, 1X/DAY
     Route: 048
     Dates: start: 20160602, end: 20160608
  17. LAMOTRIGIN [Suspect]
     Active Substance: LAMOTRIGINE
     Dosage: 200 MG, 1X/DAY
     Route: 048
     Dates: start: 20160401
  18. QUILONUM RETARD [Suspect]
     Active Substance: LITHIUM CARBONATE
     Dosage: 900 MG, 1X/DAY
     Route: 048
     Dates: start: 20160603
  19. ARIPIPRAZOL [Suspect]
     Active Substance: ARIPIPRAZOLE
     Dosage: 15 MG, 1X/DAY
     Route: 048
     Dates: start: 20160528, end: 20160610
  20. ACETYLSALICYLIC ACID [Concomitant]
     Active Substance: ASPIRIN
     Dosage: 100 MG, 1X/DAY
     Route: 048
     Dates: start: 20160401
  21. CLOZAPINE. [Suspect]
     Active Substance: CLOZAPINE
     Dosage: 0-250 MG
     Route: 048
     Dates: start: 20160329, end: 20160526

REACTIONS (7)
  - Urinary incontinence [Recovered/Resolved]
  - Altered state of consciousness [Recovered/Resolved]
  - Persistent depressive disorder [Recovered/Resolved]
  - Gait disturbance [Recovered/Resolved]
  - Electroencephalogram abnormal [Recovered/Resolved]
  - Condition aggravated [Recovered/Resolved]
  - Cognitive disorder [Recovered/Resolved]

NARRATIVE: CASE EVENT DATE: 20160606
